FAERS Safety Report 14154704 (Version 1)
Quarter: 2017Q4

REPORT INFORMATION
  Report Type: Spontaneous
  Country: US (occurrence: US)
  Receive Date: 20171102
  Receipt Date: 20171102
  Transmission Date: 20180321
  Serious: No
  Sender: FDA-Public Use
  Company Number: None

PATIENT
  Age: 76 Year
  Sex: Male
  Weight: 79.2 kg

DRUGS (7)
  1. VITAMIN D3 [Concomitant]
     Active Substance: CHOLECALCIFEROL
  2. FIBER TABS [Concomitant]
     Active Substance: CALCIUM POLYCARBOPHIL
  3. LOVASTATIN. [Concomitant]
     Active Substance: LOVASTATIN
  4. LISINOPRIL. [Concomitant]
     Active Substance: LISINOPRIL
  5. SILDENAFIL. [Concomitant]
     Active Substance: SILDENAFIL
  6. ALOGLIPTIN. [Suspect]
     Active Substance: ALOGLIPTIN
     Indication: TYPE 2 DIABETES MELLITUS
     Route: 048
  7. RANITIDINE. [Concomitant]
     Active Substance: RANITIDINE

REACTIONS (1)
  - Muscle spasms [None]

NARRATIVE: CASE EVENT DATE: 20170825
